FAERS Safety Report 12147784 (Version 1)
Quarter: 2016Q1

REPORT INFORMATION
  Report Type: Spontaneous
  Country: FR (occurrence: FR)
  Receive Date: 20160304
  Receipt Date: 20160304
  Transmission Date: 20160526
  Serious: Yes (Hospitalization)
  Sender: FDA-Public Use
  Company Number: FR-PFIZER INC-2016124277

PATIENT
  Age: 7 Year
  Sex: Male
  Weight: 19 kg

DRUGS (1)
  1. ADVILMED ENFANTS ET NOURRISSONS [Suspect]
     Active Substance: IBUPROFEN
     Dosage: UNK
     Route: 048
     Dates: end: 20160210

REACTIONS (1)
  - Cellulitis [Unknown]

NARRATIVE: CASE EVENT DATE: 20160210
